FAERS Safety Report 21286937 (Version 3)
Quarter: 2022Q4

REPORT INFORMATION
  Report Type: Spontaneous
  Country: US (occurrence: US)
  Receive Date: 20220902
  Receipt Date: 20221212
  Transmission Date: 20230113
  Serious: Yes (Hospitalization, Other)
  Sender: FDA-Public Use
  Company Number: US-PFIZER INC-PV202200055130

PATIENT
  Age: 82 Year
  Sex: Female

DRUGS (1)
  1. XELJANZ XR [Suspect]
     Active Substance: TOFACITINIB CITRATE
     Indication: Rheumatoid arthritis
     Dosage: 11 MG, 1X/DAY
     Route: 048
     Dates: start: 20220601

REACTIONS (6)
  - Pneumonia [Unknown]
  - COVID-19 [Unknown]
  - Pericardial effusion [Unknown]
  - Rheumatoid arthritis [Unknown]
  - Pain [Unknown]
  - Mutism [Unknown]

NARRATIVE: CASE EVENT DATE: 20220101
